FAERS Safety Report 12314612 (Version 3)
Quarter: 2016Q2

REPORT INFORMATION
  Report Type: Spontaneous
  Country: US (occurrence: US)
  Receive Date: 20160428
  Receipt Date: 20160525
  Transmission Date: 20160815
  Serious: Yes (Death, Hospitalization)
  Sender: FDA-Public Use
  Company Number: US-JNJFOC-20160425358

PATIENT
  Sex: Male
  Weight: 115 kg

DRUGS (9)
  1. ALBUTEROL SULFATE. [Concomitant]
     Active Substance: ALBUTEROL SULFATE
     Dosage: 2 DF, AS DIRECTED
  2. LASIX [Concomitant]
     Active Substance: FUROSEMIDE
     Route: 048
  3. IMBRUVICA [Suspect]
     Active Substance: IBRUTINIB
     Indication: CHRONIC LYMPHOCYTIC LEUKAEMIA
     Route: 048
     Dates: start: 20160120, end: 20160318
  4. TRAMADOL HCL [Concomitant]
     Active Substance: TRAMADOL HYDROCHLORIDE
  5. MS CONTIN [Concomitant]
     Active Substance: MORPHINE SULFATE
     Route: 048
  6. NIACIN. [Concomitant]
     Active Substance: NIACIN
     Route: 048
  7. COMPAZINE [Concomitant]
     Active Substance: PROCHLORPERAZINE MALEATE
     Indication: NAUSEA
     Dosage: 10 MG, PRN, EVERY 6 HOURS
  8. OXYCODONE [Concomitant]
     Active Substance: OXYCODONE
     Indication: PAIN
     Dosage: 10 MG, PRN EVERY 3-4 HOURS
  9. AMBIEN [Concomitant]
     Active Substance: ZOLPIDEM TARTRATE
     Dosage: QHS
     Route: 048

REACTIONS (2)
  - Death [Fatal]
  - Stevens-Johnson syndrome [Unknown]

NARRATIVE: CASE EVENT DATE: 2016
